FAERS Safety Report 10010644 (Version 2)
Quarter: 2014Q1

REPORT INFORMATION
  Report Type: Spontaneous
  Country: BR (occurrence: BR)
  Receive Date: 20140314
  Receipt Date: 20140314
  Transmission Date: 20141002
  Serious: Yes (Other)
  Sender: FDA-Public Use
  Company Number: BR-AMGEN-BRASP2014015335

PATIENT
  Age: 69 Year
  Sex: Female
  Weight: 58 kg

DRUGS (2)
  1. ENBREL [Suspect]
     Indication: PSORIASIS
     Dosage: 50 MG, ONCE WEEKLY
     Route: 058
     Dates: start: 201308, end: 201311
  2. HALOBEX [Concomitant]
     Dosage: UNKNOWN ONCE A DAY

REACTIONS (8)
  - Haemorrhage [Unknown]
  - Wound [Unknown]
  - Scab [Unknown]
  - Skin fissures [Unknown]
  - Pain [Unknown]
  - Gait disturbance [Unknown]
  - Fear [Unknown]
  - Arthralgia [Unknown]
